FAERS Safety Report 9442470 (Version 2)
Quarter: 2013Q3

REPORT INFORMATION
  Report Type: Spontaneous
  Country: US (occurrence: US)
  Receive Date: 20130806
  Receipt Date: 20130815
  Transmission Date: 20140515
  Serious: Yes (Other)
  Sender: FDA-Public Use
  Company Number: US-PFIZER INC-2013227574

PATIENT
  Sex: Male

DRUGS (3)
  1. LYRICA [Suspect]
     Dosage: UNK
  2. NITROSTAT [Suspect]
     Dosage: UNK
  3. VIAGRA [Suspect]
     Dosage: UNK

REACTIONS (7)
  - Fall [Unknown]
  - Foot fracture [Unknown]
  - Diabetes mellitus [Unknown]
  - Nephrolithiasis [Unknown]
  - Deafness [Unknown]
  - Wound [Unknown]
  - Impaired healing [Unknown]
